FAERS Safety Report 23122855 (Version 1)
Quarter: 2023Q4

REPORT INFORMATION
  Report Type: Spontaneous
  Country: CN (occurrence: CN)
  Receive Date: 20231030
  Receipt Date: 20231030
  Transmission Date: 20240110
  Serious: Yes (Other)
  Sender: FDA-Public Use
  Company Number: CN-ABBVIE-5469477

PATIENT
  Age: 23 Year
  Sex: Male
  Weight: 68 kg

DRUGS (3)
  1. VENETOCLAX [Suspect]
     Active Substance: VENETOCLAX
     Indication: Lymphocytic leukaemia
     Route: 048
     Dates: start: 20231011, end: 20231025
  2. OLVEREMBATINIB [Suspect]
     Active Substance: OLVEREMBATINIB
     Indication: Lymphocytic leukaemia
     Route: 065
     Dates: start: 20231011, end: 20231025
  3. DEXAMETHASONE [Suspect]
     Active Substance: DEXAMETHASONE
     Indication: Lymphocytic leukaemia
     Route: 065
     Dates: start: 20231011, end: 20231025

REACTIONS (2)
  - Drug-induced liver injury [Unknown]
  - Alanine aminotransferase increased [Unknown]

NARRATIVE: CASE EVENT DATE: 20231018
